FAERS Safety Report 14800856 (Version 2)
Quarter: 2018Q2

REPORT INFORMATION
  Report Type: Spontaneous
  Country: BE (occurrence: BE)
  Receive Date: 20180424
  Receipt Date: 20180525
  Transmission Date: 20180711
  Serious: Yes (Life-Threatening, Disabling, Other)
  Sender: FDA-Public Use
  Company Number: BE-TEVA-2018-BE-884569

PATIENT
  Age: 48 Year
  Weight: 40 kg

DRUGS (10)
  1. IRINOTECAN [Concomitant]
     Active Substance: IRINOTECAN
     Route: 065
  2. OLMESARTAN [Suspect]
     Active Substance: OLMESARTAN
     Dosage: 20  TO 40
     Route: 048
     Dates: start: 201602, end: 20171205
  3. AMLOR 10 MG [Concomitant]
     Active Substance: AMLODIPINE BESYLATE
     Route: 065
  4. BUSCOPAN [Concomitant]
     Active Substance: BUTYLSCOPOLAMINE BROMIDE
     Route: 065
  5. ISOTEN 10 MG [Concomitant]
     Route: 065
  6. IMODIUM [Concomitant]
     Active Substance: LOPERAMIDE HYDROCHLORIDE
  7. RIVOTRIL [Concomitant]
     Active Substance: CLONAZEPAM
     Route: 065
  8. TEVETEN 600 [Concomitant]
     Route: 065
     Dates: start: 201712, end: 201801
  9. IMURAN [Concomitant]
     Active Substance: AZATHIOPRINE
     Route: 065
  10. ALDACTONE [Concomitant]
     Active Substance: SPIRONOLACTONE
     Route: 065

REACTIONS (3)
  - Weight decreased [Recovering/Resolving]
  - Diarrhoea [Recovering/Resolving]
  - Enteritis [Recovering/Resolving]

NARRATIVE: CASE EVENT DATE: 20170104
